FAERS Safety Report 9674925 (Version 1)
Quarter: 2013Q4

REPORT INFORMATION
  Report Type: Spontaneous
  Country: US (occurrence: US)
  Receive Date: 20131107
  Receipt Date: 20131107
  Transmission Date: 20140711
  Serious: Yes (Other)
  Sender: FDA-Public Use
  Company Number: US-DRREDDYS-USA/USA/13/0035351

PATIENT
  Age: 9 Year
  Sex: Male
  Weight: 68.1 kg

DRUGS (3)
  1. OLANZAPINE ORALLY DISINTEGRATING TABLET [Suspect]
     Indication: PSYCHOTIC DISORDER
     Route: 048
     Dates: start: 20130110, end: 201307
  2. OLANZAPINE ORALLY DISINTEGRATING TABLET [Suspect]
     Route: 048
     Dates: start: 201307, end: 201308
  3. OLANZAPINE ORALLY DISINTEGRATING TABLET [Suspect]
     Route: 048
     Dates: start: 201308

REACTIONS (3)
  - Off label use [Unknown]
  - Drug ineffective for unapproved indication [Unknown]
  - Product quality issue [Unknown]
